FAERS Safety Report 6698334-3 (Version None)
Quarter: 2010Q2

REPORT INFORMATION
  Report Type: 
  Country: None (occurrence: None)
  Receive Date: 20100427
  Receipt Date: 20100416
  Transmission Date: 20101027
  Serious: Yes (Hospitalization)
  Sender: FDA-Public Use
  Company Number: US-GILEAD-2010-0028251

PATIENT
  Sex: Male
  Weight: 89.438 kg

DRUGS (3)
  1. TRUVADA [Suspect]
     Indication: HIV INFECTION
     Route: 048
     Dates: start: 20090709
  2. RALTEGRAVIR [Suspect]
     Indication: HIV INFECTION
     Dates: start: 20090709
  3. DAPSONE [Concomitant]
     Indication: ANTIFUNGAL PROPHYLAXIS

REACTIONS (1)
  - SMALL INTESTINAL OBSTRUCTION [None]
